FAERS Safety Report 10028964 (Version 3)
Quarter: 2014Q2

REPORT INFORMATION
  Report Type: Spontaneous
  Country: CZ (occurrence: CZ)
  Receive Date: 20140321
  Receipt Date: 20140416
  Transmission Date: 20141212
  Serious: Yes (Other)
  Sender: FDA-Public Use
  Company Number: CZ-PFIZER INC-2014078836

PATIENT
  Age: 67 Year
  Sex: Female

DRUGS (3)
  1. LYRICA [Suspect]
     Dosage: 25 MG, 1-0-2 (3X/DAY)
     Dates: start: 201312
  2. LYRICA [Suspect]
     Dosage: 25 MG, 1-0-1 (2X/DAY)
  3. LYRICA [Suspect]
     Dosage: 25 MG, 0-0-1 (1X/DAY)
     Dates: end: 201402

REACTIONS (4)
  - Weight increased [Recovered/Resolved]
  - Varicose ulceration [Unknown]
  - Disease progression [Unknown]
  - Oedema peripheral [Recovered/Resolved]
